FAERS Safety Report 6178956-9 (Version None)
Quarter: 2009Q2

REPORT INFORMATION
  Report Type: 
  Country: None (occurrence: None)
  Receive Date: 20090505
  Receipt Date: 20090430
  Transmission Date: 20091009
  Serious: Yes (Life-Threatening, Hospitalization, Disabling, Other)
  Sender: FDA-Public Use
  Company Number: US-BRISTOL-MYERS SQUIBB COMPANY-14583157

PATIENT
  Age: 61 Year
  Sex: Male

DRUGS (20)
  1. CARBOPLATIN [Suspect]
     Indication: GLIOBLASTOMA MULTIFORME
     Dates: start: 20081218
  2. CLOTRIMAZOLE [Concomitant]
     Indication: FUNGAL SKIN INFECTION
     Dates: start: 20081212
  3. LEVETIRACETAM [Concomitant]
     Indication: CONVULSION
     Dosage: 1DF-750-1750 MG
     Route: 048
     Dates: start: 20081212
  4. DEXAMETHASONE TAB [Concomitant]
     Indication: CONVULSION
     Dosage: 1DF-4 + 8MG
     Route: 048
     Dates: start: 20081208
  5. AMLODIPINE BESYLATE [Concomitant]
     Indication: HYPERTENSION
     Dosage: 1DF-10-160MG
     Route: 048
     Dates: start: 20081106
  6. PANTOPRAZOLE SODIUM [Concomitant]
     Indication: GASTROOESOPHAGEAL REFLUX DISEASE
     Route: 048
     Dates: start: 20080904
  7. DULOXETINE HCL [Concomitant]
     Indication: DEPRESSION
     Route: 048
     Dates: start: 20080914
  8. HYDROCODONE BITARTRATE [Concomitant]
     Indication: PAIN
     Dosage: 1DF-5/325 MG
     Route: 048
     Dates: start: 20080527
  9. ZOLPIDEM TARTRATE [Concomitant]
     Indication: INSOMNIA
     Dosage: HS
     Route: 048
     Dates: start: 20080527
  10. TAMSULOSIN HCL [Concomitant]
     Indication: BENIGN PROSTATIC HYPERPLASIA
     Route: 048
     Dates: start: 20080527
  11. NIACIN [Concomitant]
     Indication: HYPERCHOLESTEROLAEMIA
     Route: 048
     Dates: start: 20080527
  12. LORAZEPAM [Concomitant]
     Indication: ANXIETY
     Dosage: ALSO ON 18DEC08,IV SINGLE DOSE,1ML
     Route: 048
     Dates: start: 20080527
  13. PEGFILGRASTIM [Concomitant]
     Indication: PROPHYLAXIS
     Dosage: SINGLE DOSE
     Route: 058
     Dates: start: 20081219
  14. PALONOSETRON [Concomitant]
     Indication: PROPHYLAXIS
     Dosage: SINGLE DOSE
     Route: 042
     Dates: start: 20081218
  15. SENNOSIDE [Concomitant]
     Indication: CONSTIPATION PROPHYLAXIS
     Route: 048
     Dates: start: 20081220
  16. DOCUSATE SODIUM [Concomitant]
     Indication: CONSTIPATION PROPHYLAXIS
     Route: 048
     Dates: start: 20081220
  17. LEVOFLOXACIN [Concomitant]
     Indication: URINARY TRACT INFECTION
     Route: 048
     Dates: start: 20081224, end: 20081230
  18. GABAPENTIN [Concomitant]
     Indication: CONVULSION
     Route: 048
     Dates: start: 20081224
  19. VALSARTAN [Concomitant]
     Indication: HYPERTENSION
     Dosage: 1DF-10-160MG
     Route: 048
     Dates: start: 20081106
  20. ACETAMINOPHEN [Concomitant]
     Indication: PAIN
     Dosage: 1DF-5/325MG
     Route: 048
     Dates: start: 20080527

REACTIONS (1)
  - CONVULSION [None]
